FAERS Safety Report 23753132 (Version 2)
Quarter: 2024Q2

REPORT INFORMATION
  Report Type: Spontaneous
  Country: US (occurrence: None)
  Receive Date: 20240417
  Receipt Date: 20240424
  Transmission Date: 20240716
  Serious: Yes (Other)
  Sender: FDA-Public Use
  Company Number: US-ROCHE-3543591

PATIENT
  Sex: Male

DRUGS (6)
  1. OCREVUS [Suspect]
     Active Substance: OCRELIZUMAB
     Indication: Relapsing-remitting multiple sclerosis
     Dosage: SUBSEQUENT DOSE RECEIVED ON /DEC/2020??RECEIVES 300 MG PER 10 ML
     Route: 042
     Dates: start: 201904
  2. TIZANIDINE [Concomitant]
     Active Substance: TIZANIDINE
  3. DALFAMPRIDINE [Concomitant]
     Active Substance: DALFAMPRIDINE
  4. COPAXONE [Concomitant]
     Active Substance: GLATIRAMER ACETATE
     Dates: start: 2018
  5. MAVENCLAD [Concomitant]
     Active Substance: CLADRIBINE
     Dates: start: 202308
  6. MAVENCLAD [Concomitant]
     Active Substance: CLADRIBINE
     Dates: start: 202309

REACTIONS (2)
  - Urinary tract infection [Unknown]
  - Gait disturbance [Unknown]
